FAERS Safety Report 25225494 (Version 1)
Quarter: 2025Q2

REPORT INFORMATION
  Report Type: Spontaneous
  Country: US (occurrence: US)
  Receive Date: 20250422
  Receipt Date: 20250422
  Transmission Date: 20250717
  Serious: No
  Sender: SUNOVION
  Company Number: US-SMPA-2025SPA003707AA

PATIENT

DRUGS (3)
  1. GEMTESA [Suspect]
     Active Substance: VIBEGRON
     Route: 048
  2. VITAMINS NOS [Concomitant]
     Active Substance: VITAMINS
     Route: 065
  3. SPIRONOLACTONE [Concomitant]
     Active Substance: SPIRONOLACTONE
     Route: 065

REACTIONS (2)
  - Hypoaesthesia [Unknown]
  - Hypertension [Unknown]
